FAERS Safety Report 8475092-3 (Version None)
Quarter: 2012Q2

REPORT INFORMATION
  Report Type: 
  Country: None (occurrence: None)
  Receive Date: 20120628
  Receipt Date: 20120614
  Transmission Date: 20120825
  Serious: Yes (Other)
  Sender: FDA-Public Use
  Company Number: IT-MYLANLABS-2012S1012096

PATIENT
  Age: 64 Year
  Sex: Female

DRUGS (6)
  1. DOXORUBICIN HCL [Concomitant]
     Indication: PRODUCT USED FOR UNKNOWN INDICATION
     Route: 042
  2. CHLORPHENIRAMINE TAB [Concomitant]
     Indication: PRODUCT USED FOR UNKNOWN INDICATION
  3. RANITIDINE HCL [Concomitant]
     Indication: PRODUCT USED FOR UNKNOWN INDICATION
     Route: 042
  4. ONDANSETRON (ZOFRAN) [Concomitant]
     Indication: PRODUCT USED FOR UNKNOWN INDICATION
  5. SOLU-CORTEF [Concomitant]
     Indication: PRODUCT USED FOR UNKNOWN INDICATION
  6. PACLITAXEL [Suspect]
     Indication: BREAST CANCER STAGE I
     Route: 042
     Dates: start: 20120605, end: 20120605

REACTIONS (6)
  - EXTRASYSTOLES [None]
  - PALPITATIONS [None]
  - GENERALISED ERYTHEMA [None]
  - SCINTILLATING SCOTOMA [None]
  - VERTIGO [None]
  - BLOOD PRESSURE INCREASED [None]
